FAERS Safety Report 7113294-9 (Version None)
Quarter: 2010Q4

REPORT INFORMATION
  Report Type: 
  Country: None (occurrence: None)
  Receive Date: 20101119
  Receipt Date: 20100702
  Transmission Date: 20110411
  Serious: No
  Sender: FDA-Public Use
  Company Number: A0868418A

PATIENT
  Age: 43 Year
  Sex: Female

DRUGS (2)
  1. WELLBUTRIN SR [Suspect]
     Indication: DEPRESSION
     Dosage: 150MG UNKNOWN
     Route: 048
     Dates: start: 20050701
  2. ADDERALL 10 [Concomitant]

REACTIONS (2)
  - HYPERHIDROSIS [None]
  - PRURITUS [None]
